FAERS Safety Report 4303758-5 (Version None)
Quarter: 2004Q1

REPORT INFORMATION
  Report Type: 
  Country: None (occurrence: None)
  Receive Date: 20040225
  Receipt Date: 20031201
  Transmission Date: 20041129
  Serious: Yes (Other)
  Sender: FDA-Public Use
  Company Number: PHBS2003JP13530

PATIENT
  Age: 78 Year
  Sex: Female

DRUGS (11)
  1. GLEEVEC [Suspect]
     Indication: GASTROINTESTINAL STROMAL TUMOUR
     Dosage: 100 MG, QID
     Route: 048
     Dates: start: 20031020
  2. ASPIRIN [Suspect]
     Dosage: 100 MG/D
     Route: 048
     Dates: end: 20031023
  3. ASPIRIN [Suspect]
     Dosage: 200 MG/D
     Route: 048
     Dates: start: 20031024
  4. THYRADIN S [Concomitant]
     Dosage: 50 MG/D
     Route: 048
     Dates: start: 20031003
  5. BLOPRESS [Concomitant]
     Dosage: 8 MG/D
     Route: 048
  6. FRANDOL [Concomitant]
     Dosage: 40 MG/D
     Route: 048
  7. ARTIST [Concomitant]
     Dosage: 10 MG/D
     Route: 048
  8. LASIX [Concomitant]
     Dosage: 40 MG/D
     Route: 048
     Dates: start: 20031104
  9. FLORID-D [Concomitant]
     Route: 061
  10. FUNGIZONE [Concomitant]
     Route: 048
  11. PENFILL R [Concomitant]
     Route: 042

REACTIONS (1)
  - BLOOD AMYLASE INCREASED [None]
